FAERS Safety Report 16717333 (Version 1)
Quarter: 2019Q3

REPORT INFORMATION
  Report Type: Spontaneous
  Country: IL (occurrence: IL)
  Receive Date: 20190819
  Receipt Date: 20190819
  Transmission Date: 20191005
  Serious: Yes (Other)
  Sender: FDA-Public Use
  Company Number: PHHY2019IL191133

PATIENT
  Sex: Female

DRUGS (1)
  1. ILARIS [Suspect]
     Active Substance: CANAKINUMAB
     Indication: FAMILIAL MEDITERRANEAN FEVER
     Dosage: 150 MG, Q4W (EVERY 4 WEEKS)
     Route: 065
     Dates: start: 20190716

REACTIONS (2)
  - Neuropathy peripheral [Unknown]
  - Paraesthesia [Unknown]
